FAERS Safety Report 10024556 (Version 1)
Quarter: 2014Q1

REPORT INFORMATION
  Report Type: Spontaneous
  Country: NZ (occurrence: NZ)
  Receive Date: 20140320
  Receipt Date: 20140320
  Transmission Date: 20141002
  Serious: Yes (Hospitalization)
  Sender: FDA-Public Use
  Company Number: NZ-ABBVIE-14P-118-1211808-00

PATIENT
  Age: 60 Year
  Sex: Female

DRUGS (2)
  1. HUMIRA [Suspect]
     Indication: RHEUMATOID ARTHRITIS
     Route: 050
     Dates: start: 2004
  2. HUMIRA [Suspect]
     Route: 050

REACTIONS (7)
  - Angina pectoris [Unknown]
  - Arthritis [Unknown]
  - Impaired work ability [Unknown]
  - Inappropriate schedule of drug administration [Unknown]
  - Chest pain [Unknown]
  - Hypertension [Unknown]
  - Rheumatoid arthritis [Unknown]
